FAERS Safety Report 9357812 (Version 1)
Quarter: 2013Q2

REPORT INFORMATION
  Report Type: Spontaneous
  Country: DK (occurrence: CA)
  Receive Date: 20130620
  Receipt Date: 20130620
  Transmission Date: 20140414
  Serious: Yes (Other)
  Sender: FDA-Public Use
  Company Number: CA-FRI-1000046031

PATIENT
  Sex: Female

DRUGS (6)
  1. CELEXA [Suspect]
     Route: 048
  2. PEGASYS [Suspect]
     Indication: HEPATITIS C
     Dosage: 25.7143 MCG
     Route: 058
     Dates: start: 20130201
  3. COPEGUS [Suspect]
     Indication: HEPATITIS C
     Dosage: 1200 MG
     Route: 048
     Dates: start: 20130201
  4. NEXIUM [Concomitant]
  5. ADVAIR [Concomitant]
  6. VENTOLIN [Concomitant]

REACTIONS (1)
  - Hepatitis B [Not Recovered/Not Resolved]
